FAERS Safety Report 21375923 (Version 1)
Quarter: 2022Q3

REPORT INFORMATION
  Report Type: Spontaneous
  Country: GB (occurrence: GB)
  Receive Date: 20220926
  Receipt Date: 20220926
  Transmission Date: 20221026
  Serious: Yes (Life-Threatening, Hospitalization, Disabling, Other)
  Sender: FDA-Public Use
  Company Number: None

PATIENT
  Age: 29 Year
  Sex: Male
  Weight: 102 kg

DRUGS (3)
  1. ARIPIPRAZOLE [Suspect]
     Active Substance: ARIPIPRAZOLE
     Indication: Adverse drug reaction
     Dosage: 10MG ONCE A DAY
     Route: 065
     Dates: start: 20210724, end: 20211201
  2. LEVOTHYROXINE [Concomitant]
     Active Substance: LEVOTHYROXINE
     Indication: Thyroid cancer
     Dosage: UNKNOWN
     Route: 065
     Dates: start: 20210317
  3. RISPERIDONE [Concomitant]
     Active Substance: RISPERIDONE
     Indication: Psychotic disorder
     Dosage: UNKNOWN
     Route: 065
     Dates: start: 20141101, end: 20210824

REACTIONS (14)
  - Medication error [Unknown]
  - Disturbance in sexual arousal [Recovering/Resolving]
  - Aggression [Recovered/Resolved with Sequelae]
  - Paranoia [Not Recovered/Not Resolved]
  - Anxiety [Not Recovered/Not Resolved]
  - Hallucination [Recovered/Resolved]
  - Compulsive shopping [Recovered/Resolved]
  - Depression [Not Recovered/Not Resolved]
  - Mood swings [Not Recovered/Not Resolved]
  - Stress [Not Recovered/Not Resolved]
  - Hallucination, auditory [Recovering/Resolving]
  - Condition aggravated [Unknown]
  - Suicidal ideation [Unknown]
  - Physical abuse [Unknown]

NARRATIVE: CASE EVENT DATE: 20210724
